FAERS Safety Report 16272073 (Version 1)
Quarter: 2019Q2

REPORT INFORMATION
  Report Type: Spontaneous
  Country: US (occurrence: US)
  Receive Date: 20190503
  Receipt Date: 20190503
  Transmission Date: 20190711
  Serious: No
  Sender: FDA-Public Use
  Company Number: US-ASTRAZENECA-2019SE54603

PATIENT
  Age: 22513 Day
  Sex: Male
  Weight: 50.8 kg

DRUGS (1)
  1. BYDUREON BCISE [Suspect]
     Active Substance: EXENATIDE
     Indication: TYPE 2 DIABETES MELLITUS
     Route: 058
     Dates: start: 20190405

REACTIONS (5)
  - Injection site extravasation [Unknown]
  - Injection site haemorrhage [Recovered/Resolved]
  - Incorrect dose administered [Not Recovered/Not Resolved]
  - Device leakage [Unknown]
  - Device malfunction [Unknown]

NARRATIVE: CASE EVENT DATE: 20190405
